FAERS Safety Report 10060281 (Version 1)
Quarter: 2014Q2

REPORT INFORMATION
  Report Type: Spontaneous
  Country: GB (occurrence: GB)
  Receive Date: 20140404
  Receipt Date: 20140404
  Transmission Date: 20141212
  Serious: Yes (Hospitalization, Disabling)
  Sender: FDA-Public Use
  Company Number: GB-JNJFOC-20140401473

PATIENT
  Age: 58 Year
  Sex: Male
  Weight: 84 kg

DRUGS (11)
  1. XARELTO [Suspect]
     Indication: PRODUCT USED FOR UNKNOWN INDICATION
     Route: 048
     Dates: start: 20131202, end: 20131230
  2. SECURON [Concomitant]
     Route: 065
     Dates: start: 20131216, end: 20140210
  3. SERETIDE [Concomitant]
     Route: 065
     Dates: start: 20131022, end: 20140219
  4. TIOTROPIUM [Concomitant]
     Route: 065
     Dates: start: 20131203, end: 20140201
  5. VENTOLIN [Concomitant]
     Route: 065
     Dates: start: 20131120, end: 20140113
  6. OMEPRAZOLE [Concomitant]
     Route: 065
     Dates: start: 20131122, end: 20140115
  7. MACROGOL [Concomitant]
     Route: 065
     Dates: start: 20131203, end: 20140122
  8. DABIGATRAN ETEXILATE [Concomitant]
     Route: 065
     Dates: start: 20131122, end: 20131222
  9. GLIMEPIRIDE [Concomitant]
     Route: 065
     Dates: start: 20131122, end: 20140115
  10. RAMIPRIL [Concomitant]
     Route: 065
     Dates: start: 20131216, end: 20140210
  11. LEVOTHYROXINE [Concomitant]
     Route: 065
     Dates: start: 20131216, end: 20140211

REACTIONS (4)
  - Dyspnoea [Recovered/Resolved]
  - Vitreous floaters [Recovered/Resolved]
  - Pain [Recovered/Resolved]
  - Somnolence [Unknown]
